FAERS Safety Report 5626975-0 (Version None)
Quarter: 2008Q1

REPORT INFORMATION
  Report Type: 
  Country: None (occurrence: None)
  Receive Date: 20080130
  Receipt Date: 20070103
  Transmission Date: 20080703
  Serious: Yes (Hospitalization)
  Sender: FDA-Public Use
  Company Number: HQWYE460104JAN07

PATIENT
  Age: 74 Year
  Sex: Male

DRUGS (1)
  1. CORDARONE [Suspect]
     Dosage: ORAL
     Route: 048
     Dates: end: 20061114

REACTIONS (1)
  - PULMONARY TOXICITY [None]
